FAERS Safety Report 9693554 (Version 1)
Quarter: 2013Q4

REPORT INFORMATION
  Report Type: Spontaneous
  Country: JP (occurrence: JP)
  Receive Date: 20131118
  Receipt Date: 20131118
  Transmission Date: 20140711
  Serious: Yes (Hospitalization)
  Sender: FDA-Public Use
  Company Number: JP-GLAXOSMITHKLINE-B0944096A

PATIENT
  Age: 79 Year
  Sex: Female

DRUGS (9)
  1. VALTREX [Suspect]
     Indication: HERPES ZOSTER
     Dosage: 1000MG THREE TIMES PER DAY
     Route: 048
     Dates: start: 20131109, end: 20131110
  2. BAYASPIRIN [Concomitant]
     Route: 048
  3. PLAVIX [Concomitant]
     Route: 048
  4. ONEALFA [Concomitant]
     Route: 048
  5. FUROSEMIDE [Concomitant]
     Route: 065
  6. PRONON [Concomitant]
     Route: 048
  7. FOSRENOL [Concomitant]
     Route: 048
  8. WARFARIN [Concomitant]
     Route: 048
  9. UNKNOWN DRUG [Concomitant]
     Route: 065

REACTIONS (4)
  - Altered state of consciousness [Not Recovered/Not Resolved]
  - Dyslalia [Unknown]
  - Vomiting [Unknown]
  - Overdose [Unknown]
